FAERS Safety Report 24910965 (Version 4)
Quarter: 2025Q1

REPORT INFORMATION
  Report Type: Report from Study
  Country: SA (occurrence: SA)
  Receive Date: 20250131
  Receipt Date: 20250307
  Transmission Date: 20250409
  Serious: Yes (Other)
  Sender: NOVARTIS
  Company Number: SA-002147023-NVSC2024SA245883

PATIENT
  Age: 60 Year
  Sex: Male

DRUGS (3)
  1. LEQVIO [Suspect]
     Active Substance: INCLISIRAN SODIUM
     Indication: Hypercholesterolaemia
     Route: 058
     Dates: start: 20231019
  2. ASPIRIN [Concomitant]
     Active Substance: ASPIRIN
     Indication: Product used for unknown indication
     Route: 065
  3. Bevac [Concomitant]
     Indication: Product used for unknown indication
     Route: 065

REACTIONS (7)
  - Fatigue [Recovered/Resolved]
  - Malaise [Unknown]
  - Hypoaesthesia [Recovered/Resolved]
  - Anger [Recovered/Resolved]
  - Limb discomfort [Recovered/Resolved]
  - Insomnia [Unknown]
  - Inappropriate schedule of product administration [Unknown]

NARRATIVE: CASE EVENT DATE: 20231101
